FAERS Safety Report 13023616 (Version 1)
Quarter: 2016Q4

REPORT INFORMATION
  Report Type: Spontaneous
  Country: US (occurrence: US)
  Receive Date: 20161212
  Receipt Date: 20161212
  Transmission Date: 20170207
  Serious: Yes (Other)
  Sender: FDA-Public Use
  Company Number: None

PATIENT
  Age: 48 Year
  Sex: Female
  Weight: 87.75 kg

DRUGS (11)
  1. OMNEPRAZOLE [Concomitant]
  2. DULOXETINE. [Suspect]
     Active Substance: DULOXETINE
     Indication: DEPRESSION
     Dosage: ?          QUANTITY:60 CAPSULE(S);?
     Route: 048
     Dates: start: 20150805, end: 20161118
  3. PROGESTERONE. [Concomitant]
     Active Substance: PROGESTERONE
  4. LEVOTHYROXINE. [Concomitant]
     Active Substance: LEVOTHYROXINE
  5. DOXEPIN [Concomitant]
     Active Substance: DOXEPIN
  6. VITAMIN B12 [Concomitant]
     Active Substance: CYANOCOBALAMIN
  7. METFORMIN [Concomitant]
     Active Substance: METFORMIN HYDROCHLORIDE
  8. ESTROGEN [Concomitant]
     Active Substance: ESTRONE\SUS SCROFA OVARY
  9. LOSARTIN [Concomitant]
     Active Substance: LOSARTAN
  10. ATORVASTATIN [Concomitant]
     Active Substance: ATORVASTATIN
  11. CALCIUM WITH D3 [Concomitant]

REACTIONS (6)
  - Asthenia [None]
  - Drug dose omission [None]
  - Paraesthesia [None]
  - Activities of daily living impaired [None]
  - Withdrawal syndrome [None]
  - Malaise [None]

NARRATIVE: CASE EVENT DATE: 20160805
